FAERS Safety Report 23200951 (Version 1)
Quarter: 2023Q4

REPORT INFORMATION
  Report Type: Report from Study
  Country: US (occurrence: US)
  Receive Date: 20231118
  Receipt Date: 20231118
  Transmission Date: 20240110
  Serious: Yes (Other)
  Sender: FDA-Public Use
  Company Number: US-ALXN-202311USA000538US

PATIENT

DRUGS (1)
  1. STRENSIQ [Suspect]
     Active Substance: ASFOTASE ALFA
     Indication: Product used for unknown indication
     Dosage: UNK
     Route: 065

REACTIONS (11)
  - Arrhythmia [Unknown]
  - Stress [Unknown]
  - Asthenia [Unknown]
  - Nervous system disorder [Unknown]
  - Coordination abnormal [Unknown]
  - Fatigue [Unknown]
  - Carbon monoxide poisoning [Unknown]
  - Depression [Unknown]
  - Obsessive-compulsive disorder [Unknown]
  - Myalgia [Unknown]
  - Arthralgia [Unknown]

NARRATIVE: CASE EVENT DATE: 20220101
